FAERS Safety Report 16260350 (Version 1)
Quarter: 2019Q2

REPORT INFORMATION
  Report Type: Spontaneous
  Country: US (occurrence: US)
  Receive Date: 20190430
  Receipt Date: 20190430
  Transmission Date: 20190711
  Serious: Yes (Other)
  Sender: FDA-Public Use
  Company Number: None

PATIENT
  Sex: Male
  Weight: 114.7 kg

DRUGS (13)
  1. AFINITOR [Suspect]
     Active Substance: EVEROLIMUS
     Indication: THYROID CANCER
     Route: 048
     Dates: start: 20181101, end: 20190430
  2. HYDROCHLOROTHIAZIDE. [Concomitant]
     Active Substance: HYDROCHLOROTHIAZIDE
  3. HYDROCODONE-ACETAMINOPHEN [Concomitant]
     Active Substance: ACETAMINOPHEN\HYDROCODONE
  4. LORAZEPAM. [Concomitant]
     Active Substance: LORAZEPAM
  5. VOTRIENT 800MG DAILY [Concomitant]
     Dates: start: 20190329
  6. LASIX [Concomitant]
     Active Substance: FUROSEMIDE
  7. PHENELZINE [Concomitant]
     Active Substance: PHENELZINE
  8. VENTOLIN [Concomitant]
     Active Substance: ALBUTEROL SULFATE
  9. ZANAFLEX [Concomitant]
     Active Substance: TIZANIDINE HYDROCHLORIDE
  10. LANTUS SOLOSTAR [Concomitant]
     Active Substance: INSULIN GLARGINE
  11. GLIPIZIDE. [Concomitant]
     Active Substance: GLIPIZIDE
  12. ELIQUIS [Concomitant]
     Active Substance: APIXABAN
  13. SYNTHROID [Concomitant]
     Active Substance: LEVOTHYROXINE SODIUM

REACTIONS (1)
  - Disease progression [None]
